FAERS Safety Report 9614746 (Version 3)
Quarter: 2013Q4

REPORT INFORMATION
  Report Type: Spontaneous
  Country: GB (occurrence: GB)
  Receive Date: 20131011
  Receipt Date: 20131121
  Transmission Date: 20140711
  Serious: Yes (Life-Threatening, Disabling)
  Sender: FDA-Public Use
  Company Number: GB-009507513-1310GBR001798

PATIENT
  Age: 29 Year
  Sex: Female

DRUGS (1)
  1. IMPLANON [Suspect]
     Indication: CONTRACEPTION
     Dosage: UNK
     Route: 059

REACTIONS (6)
  - Polymyositis [Unknown]
  - Disability [Unknown]
  - Overweight [Unknown]
  - Limb immobilisation [Unknown]
  - Medical device complication [Unknown]
  - Incorrect drug administration duration [Unknown]
